FAERS Safety Report 24765305 (Version 1)
Quarter: 2024Q4

REPORT INFORMATION
  Report Type: Spontaneous
  Country: US (occurrence: US)
  Receive Date: 20241223
  Receipt Date: 20241223
  Transmission Date: 20250115
  Serious: No
  Sender: IPSEN BIOPHARMACEUTICALS, INC.
  Company Number: US-IPSEN Group, Research and Development-2024-25988

PATIENT
  Age: 18 Year

DRUGS (2)
  1. BYLVAY [Suspect]
     Active Substance: ODEVIXIBAT
     Indication: Progressive familial intrahepatic cholestasis
     Route: 065
  2. BYLVAY [Suspect]
     Active Substance: ODEVIXIBAT
     Route: 065

REACTIONS (1)
  - Diarrhoea [Recovered/Resolved]
